FAERS Safety Report 14239392 (Version 1)
Quarter: 2017Q4

REPORT INFORMATION
  Report Type: Spontaneous
  Country: US (occurrence: US)
  Receive Date: 20171127
  Receipt Date: 20171127
  Transmission Date: 20180321
  Serious: Yes (Hospitalization)
  Sender: FDA-Public Use
  Company Number: None

PATIENT
  Age: 70 Year
  Sex: Female
  Weight: 131.5 kg

DRUGS (4)
  1. ENALAPRIL [Concomitant]
     Active Substance: ENALAPRIL
  2. INSULIN [Concomitant]
     Active Substance: INSULIN NOS
  3. SIMVASTATIN. [Concomitant]
     Active Substance: SIMVASTATIN
  4. CLINDAMYCIN. [Suspect]
     Active Substance: CLINDAMYCIN
     Indication: LOCALISED INFECTION

REACTIONS (2)
  - Rash pruritic [None]
  - Urticaria [None]

NARRATIVE: CASE EVENT DATE: 20171125
